FAERS Safety Report 15432581 (Version 4)
Quarter: 2019Q4

REPORT INFORMATION
  Report Type: Spontaneous
  Country: IT (occurrence: IT)
  Receive Date: 20180927
  Receipt Date: 20191018
  Transmission Date: 20200122
  Serious: Yes (Hospitalization)
  Sender: FDA-Public Use
  Company Number: IT-ROCHE-2188497

PATIENT
  Age: 33 Year
  Sex: Male

DRUGS (7)
  1. RIVOTRIL [Suspect]
     Active Substance: CLONAZEPAM
     Indication: NEURALGIA
     Route: 048
     Dates: start: 20021115, end: 20021205
  2. ACETAMINOPHEN. [Suspect]
     Active Substance: ACETAMINOPHEN
     Indication: INFLUENZA LIKE ILLNESS
     Dosage: UNK (TOTAL DOSE 4 G OVER THE PREVIOUS 72 H)
     Route: 048
     Dates: start: 20021208, end: 20021211
  3. SUBUTEX [Suspect]
     Active Substance: BUPRENORPHINE HYDROCHLORIDE
     Indication: DRUG DEPENDENCE
     Route: 060
     Dates: start: 20021121, end: 20021211
  4. METHADONE [Suspect]
     Active Substance: METHADONE HYDROCHLORIDE
     Indication: DETOXIFICATION
     Route: 065
  5. NEURONTIN [Concomitant]
     Active Substance: GABAPENTIN
     Indication: SEDATION
     Route: 048
     Dates: start: 20021121
  6. GABAPENTIN. [Suspect]
     Active Substance: GABAPENTIN
     Indication: PRODUCT USED FOR UNKNOWN INDICATION
     Route: 065
  7. SUBUTEX [Suspect]
     Active Substance: BUPRENORPHINE HYDROCHLORIDE
     Route: 060
     Dates: start: 20021212, end: 20021212

REACTIONS (18)
  - Abdominal pain upper [Recovered/Resolved]
  - Prothrombin time prolonged [Recovered/Resolved]
  - Hepatic encephalopathy [Recovered/Resolved]
  - Hepatitis toxic [Recovered/Resolved]
  - Pyrexia [Recovered/Resolved]
  - Hepatic steatosis [Recovered/Resolved]
  - Hepatic function abnormal [Recovered/Resolved]
  - Alanine aminotransferase increased [Recovered/Resolved]
  - Drug level increased [Recovered/Resolved]
  - Renal failure [Recovered/Resolved]
  - Vomiting [Recovered/Resolved]
  - Jaundice [Recovered/Resolved]
  - Hepatic necrosis [Recovered/Resolved]
  - Cholestasis [Recovered/Resolved]
  - Acute hepatic failure [Recovered/Resolved with Sequelae]
  - Anuria [Recovered/Resolved]
  - Influenza like illness [Recovered/Resolved]
  - Drug-induced liver injury [Recovered/Resolved]

NARRATIVE: CASE EVENT DATE: 20021209
